APPROVED DRUG PRODUCT: ONPATTRO
Active Ingredient: PATISIRAN SODIUM
Strength: EQ 10MG BASE/5ML (EQ 2MG BASE/ML)
Dosage Form/Route: SOLUTION;INTRAVENOUS
Application: N210922 | Product #001
Applicant: ALNYLAM PHARMACEUTICALS INC
Approved: Aug 10, 2018 | RLD: Yes | RS: Yes | Type: RX

PATENTS:
Patent 8802644 | Expires: Oct 21, 2030
Patent 8822668 | Expires: Apr 15, 2029
Patent 8158601 | Expires: Nov 10, 2030
Patent 8168775 | Expires: Aug 10, 2032
Patent 9364435 | Expires: Apr 15, 2029
Patent 9234196 | Expires: Oct 20, 2029
Patent 8741866 | Expires: Oct 20, 2029
Patent 11079379 | Expires: Aug 27, 2035
Patent 10240152 | Expires: Oct 20, 2029
Patent 11141378 | Expires: Apr 15, 2029
Patent 8642076 | Expires: Oct 3, 2027
Patent 8492359 | Expires: Apr 15, 2029
Patent 8058069 | Expires: Apr 15, 2029

EXCLUSIVITY:
Code: M-270 | Date: Jan 13, 2026